FAERS Safety Report 6447017-3 (Version None)
Quarter: 2009Q4

REPORT INFORMATION
  Report Type: 
  Country: None (occurrence: None)
  Receive Date: 20091119
  Receipt Date: 20091117
  Transmission Date: 20100525
  Serious: Yes (Other)
  Sender: FDA-Public Use
  Company Number: GB-TEVA-150044ISR

PATIENT
  Sex: Male

DRUGS (4)
  1. PREDNISOLONE [Suspect]
     Indication: POLYMYOSITIS
     Route: 048
  2. PREDNISOLONE [Concomitant]
  3. IRINOTECAN HYDROCHLORIDE [Suspect]
     Indication: GASTROINTESTINAL CARCINOMA
     Route: 042
  4. ATROPINE SULFATE [Suspect]
     Indication: GASTROINTESTINAL CARCINOMA
     Route: 058

REACTIONS (2)
  - MONOPARESIS [None]
  - MUSCULAR WEAKNESS [None]
